FAERS Safety Report 9866318 (Version 1)
Quarter: 2014Q1

REPORT INFORMATION
  Report Type: Spontaneous
  Country: US (occurrence: US)
  Receive Date: 20140203
  Receipt Date: 20140203
  Transmission Date: 20141002
  Serious: No
  Sender: FDA-Public Use
  Company Number: US-ALLERGAN-1319235US

PATIENT
  Age: 69 Year
  Sex: Male

DRUGS (5)
  1. RESTASIS [Suspect]
     Indication: DRY EYE
     Dosage: UNK
     Route: 047
     Dates: start: 2009
  2. REFRESH OPTIVE [Concomitant]
     Indication: DRY EYE
     Dosage: 2 GTT, UNK
     Dates: start: 201306
  3. BLOOD PRESSURE MEDICINE [Concomitant]
     Indication: HYPERTENSION
     Dosage: UNK
  4. CHOLESTEROL MEDICINE [Concomitant]
     Indication: BLOOD CHOLESTEROL INCREASED
     Dosage: UNK
  5. OSTEOPOROSIS MEDICINE [Concomitant]
     Indication: OSTEOPOROSIS

REACTIONS (4)
  - Inappropriate schedule of drug administration [Unknown]
  - Incorrect dose administered [Unknown]
  - Eye irritation [Not Recovered/Not Resolved]
  - Eye pruritus [Not Recovered/Not Resolved]
